FAERS Safety Report 9607822 (Version 1)
Quarter: 2013Q4

REPORT INFORMATION
  Report Type: Other
  Country: US (occurrence: US)
  Receive Date: 20131009
  Receipt Date: 20131009
  Transmission Date: 20140711
  Serious: Yes (Life-Threatening, Other)
  Sender: FDA-Public Use
  Company Number: US-PURDUE-USA-2013-0107025

PATIENT
  Age: 61 Year
  Sex: Female

DRUGS (1)
  1. OXYCODONE HYDROCHLORIDE (SIMILAR TO NDA 22-272) [Suspect]
     Indication: PRODUCT USED FOR UNKNOWN INDICATION
     Dosage: 60 MG, UNK

REACTIONS (4)
  - Overdose [Unknown]
  - Right ventricular failure [Recovering/Resolving]
  - Respiratory distress [Recovering/Resolving]
  - Respiratory failure [Recovering/Resolving]
